FAERS Safety Report 10463362 (Version 1)
Quarter: 2014Q3

REPORT INFORMATION
  Report Type: Spontaneous
  Country: US (occurrence: None)
  Receive Date: 20140918
  Receipt Date: 20140918
  Transmission Date: 20150326
  Serious: Yes (Death, Hospitalization)
  Sender: FDA-Public Use
  Company Number: None

PATIENT
  Age: 53 Year
  Sex: Male

DRUGS (10)
  1. PROBIOTIC [Concomitant]
     Active Substance: PROBIOTICS NOS
  2. INSULIN LISPRO [Concomitant]
     Active Substance: INSULIN LISPRO
  3. DIPHENOXYLATE-ATROPINE [Concomitant]
  4. MULTIVITAMIN [Concomitant]
     Active Substance: VITAMINS
  5. ACYCLOVIR. [Concomitant]
     Active Substance: ACYCLOVIR
  6. PREDNISONE. [Concomitant]
     Active Substance: PREDNISONE
  7. INSULIN GLARGINE [Concomitant]
     Active Substance: INSULIN GLARGINE
  8. IBRUTINIB [Suspect]
     Active Substance: IBRUTINIB
     Indication: CHRONIC LYMPHOCYTIC LEUKAEMIA
     Route: 048
     Dates: start: 20130830, end: 20140506
  9. FOLIC ACID. [Concomitant]
     Active Substance: FOLIC ACID
  10. RANITIDINE [Concomitant]
     Active Substance: RANITIDINE\RANITIDINE HYDROCHLORIDE

REACTIONS (8)
  - Diarrhoea [None]
  - Pneumonia [None]
  - Abdominal pain [None]
  - B-cell small lymphocytic lymphoma [None]
  - Autoimmune haemolytic anaemia [None]
  - Headache [None]
  - Hyperglycaemia [None]
  - Biopsy bone marrow abnormal [None]

NARRATIVE: CASE EVENT DATE: 20140526
